FAERS Safety Report 8285869-5 (Version None)
Quarter: 2012Q2

REPORT INFORMATION
  Report Type: 
  Country: None (occurrence: None)
  Receive Date: 20120413
  Receipt Date: 20120403
  Transmission Date: 20120825
  Serious: Yes (Hospitalization, Other)
  Sender: FDA-Public Use
  Company Number: US-ELI_LILLY_AND_COMPANY-US201009003979

PATIENT
  Sex: Female
  Weight: 69.388 kg

DRUGS (29)
  1. FORTEO [Suspect]
     Indication: OSTEOPOROSIS
     Dosage: 20 UG, DAILY (1/D)
     Route: 058
     Dates: start: 20100708
  2. DIGOXIN [Concomitant]
     Dosage: 0.125 MG, QD
  3. VITAMIN D [Concomitant]
     Dosage: 2000 IU, QD
  4. HYDROCODONE BITARTRATE [Concomitant]
     Dosage: 5 MG, PRN
  5. SOMA [Concomitant]
     Dosage: 250 MG, UNK
     Dates: end: 20110414
  6. ASCORBIC ACID [Concomitant]
     Dosage: 1000 MG, QD
  7. MELOXICAM [Concomitant]
     Indication: INFLAMMATION
     Dosage: 7.5 MG, QD
  8. CRESTOR [Concomitant]
     Dosage: 10 MG, QD
  9. POLYETHYLENE GLYCOL [Concomitant]
     Indication: CONSTIPATION
     Dosage: UNK
  10. VITAMIN E [Concomitant]
     Dosage: 400 MG, QD
  11. CALCIUM CARBONATE [Concomitant]
     Indication: EYE DISORDER
     Dosage: UNK, QD
  12. MIRALAX [Concomitant]
     Indication: CONSTIPATION
  13. FORTEO [Suspect]
     Dosage: 20 UG, QD
     Route: 058
  14. FORTEO [Suspect]
     Dosage: 20 UG, QD
     Route: 058
     Dates: end: 20120306
  15. DIOVAN [Concomitant]
     Indication: BLOOD PRESSURE
     Dosage: 320 MG, QD
  16. ASPIRIN [Concomitant]
     Dosage: 81 MG, QD
  17. EQUATE STOOL SOFTENER [Concomitant]
     Dosage: 1 DF, QD
  18. ZINC SULFATE [Concomitant]
     Dosage: 15 MG, QD
  19. OMEPRAZOLE [Concomitant]
     Indication: GASTRIC DISORDER
     Dosage: 20 MG, QD
  20. BYSTOLIC [Concomitant]
     Indication: BLOOD PRESSURE
     Dosage: 10 MG, QD
  21. FORTEO [Suspect]
     Dosage: 20 UG, DAILY (1/D)
     Route: 058
  22. MULTI-VITAMIN [Concomitant]
     Dosage: UNK, QD
  23. FORTEO [Suspect]
     Dosage: 20 UG, DAILY (1/D)
     Route: 058
  24. FORTEO [Suspect]
     Dosage: 20 UG, QD
     Route: 058
  25. TEKTURNA [Concomitant]
     Indication: BLOOD PRESSURE
     Dosage: 300 MG, QD
  26. SYNTHROID [Concomitant]
     Dosage: 0.075 MG, QD
  27. FORTEO [Suspect]
     Dosage: 20 UG, DAILY (1/D)
     Route: 058
  28. FORTEO [Suspect]
     Dosage: 20 UG, QD
     Route: 058
  29. MAGNESIUM [Concomitant]
     Indication: EYE DISORDER
     Dosage: 400 MG, QD

REACTIONS (13)
  - SPINAL FRACTURE [None]
  - BACK PAIN [None]
  - PAIN [None]
  - SPINAL COLUMN STENOSIS [None]
  - NERVE INJURY [None]
  - PAIN IN EXTREMITY [None]
  - HYPOAESTHESIA [None]
  - TENDON DISORDER [None]
  - WEIGHT DECREASED [None]
  - SPINAL COLUMN INJURY [None]
  - POOR PERIPHERAL CIRCULATION [None]
  - ARTHRALGIA [None]
  - KNEE ARTHROPLASTY [None]
